FAERS Safety Report 5721588-4 (Version None)
Quarter: 2008Q2

REPORT INFORMATION
  Report Type: 
  Country: None (occurrence: None)
  Receive Date: 20080428
  Receipt Date: 20080428
  Transmission Date: 20081010
  Serious: No
  Sender: FDA-Public Use
  Company Number: None

PATIENT
  Age: 51 Year
  Sex: Female
  Weight: 86.1834 kg

DRUGS (1)
  1. CEFUROXIME [Suspect]
     Indication: LOWER RESPIRATORY TRACT INFECTION
     Dosage: 1 TABLET TWICE DAILY TWICE DAILY PO
     Route: 048
     Dates: start: 20080417, end: 20080425

REACTIONS (1)
  - URTICARIA [None]
